FAERS Safety Report 19143750 (Version 1)
Quarter: 2021Q2

REPORT INFORMATION
  Report Type: Report from Study
  Country: TH (occurrence: TH)
  Receive Date: 20210415
  Receipt Date: 20210415
  Transmission Date: 20210717
  Serious: Yes (Death, Other)
  Sender: FDA-Public Use
  Company Number: TH-ASTRAZENECA-2021A284843

PATIENT
  Age: 69 Year
  Sex: Female

DRUGS (3)
  1. TAGRISSO [Suspect]
     Active Substance: OSIMERTINIB
     Indication: LUNG NEOPLASM MALIGNANT
     Route: 048
     Dates: start: 20201214, end: 2021
  2. MORPHINE [Concomitant]
     Active Substance: MORPHINE
  3. TAGRISSO [Suspect]
     Active Substance: OSIMERTINIB
     Indication: LUNG NEOPLASM MALIGNANT
     Dosage: INCREASED TO 1 X2 TAB DAILY, FOR 1 WEEK
     Route: 048
     Dates: start: 20201214, end: 2021

REACTIONS (8)
  - Dyspnoea [Fatal]
  - Arthralgia [Fatal]
  - Back pain [Fatal]
  - Blood pressure decreased [Unknown]
  - Metastases to lung [Fatal]
  - Drug resistance [Fatal]
  - Pulmonary oedema [Fatal]
  - Metastases to skin [Fatal]

NARRATIVE: CASE EVENT DATE: 2021
